FAERS Safety Report 10165632 (Version 2)
Quarter: 2014Q2

REPORT INFORMATION
  Report Type: Spontaneous
  Country: US (occurrence: US)
  Receive Date: 20140510
  Receipt Date: 20140510
  Transmission Date: 20141212
  Serious: No
  Sender: FDA-Public Use
  Company Number: US-BRISTOL-MYERS SQUIBB COMPANY-19875467

PATIENT
  Age: 72 Year
  Sex: Male

DRUGS (3)
  1. BYDUREON  2MG SUSPENSION [Suspect]
     Indication: TYPE 2 DIABETES MELLITUS
     Dosage: NO OF DOSES:8
     Route: 058
     Dates: start: 2012
  2. GLYBURIDE [Concomitant]
  3. METFORMIN [Concomitant]
     Dosage: 1DF:5/500MG

REACTIONS (2)
  - Underdose [Unknown]
  - Product quality issue [Unknown]
